FAERS Safety Report 9882960 (Version 1)
Quarter: 2014Q1

REPORT INFORMATION
  Report Type: Spontaneous
  Country: US (occurrence: None)
  Receive Date: 20140205
  Receipt Date: 20140205
  Transmission Date: 20141002
  Serious: Yes (Other)
  Sender: FDA-Public Use
  Company Number: 2014SA004774

PATIENT
  Age: 47 Year
  Sex: Male

DRUGS (1)
  1. ICY HOT MEDICATED NO MESS APPLICATOR [Suspect]
     Dosage: UKNOWN, UNKNOWN, UNKNOWN

REACTIONS (8)
  - Application site pain [None]
  - Application site reaction [None]
  - Application site pain [None]
  - Malaise [None]
  - Application site scar [None]
  - Application site exfoliation [None]
  - Application site discolouration [None]
  - Emotional disorder [None]
